FAERS Safety Report 8070830-6 (Version None)
Quarter: 2012Q1

REPORT INFORMATION
  Report Type: 
  Country: None (occurrence: None)
  Receive Date: 20120125
  Receipt Date: 20120124
  Transmission Date: 20120608
  Serious: Yes (Hospitalization)
  Sender: FDA-Public Use
  Company Number: US-GLAXOSMITHKLINE-A0962944A

PATIENT
  Age: 89 Year
  Sex: Female

DRUGS (7)
  1. ULTRAM [Concomitant]
  2. VASERETIC [Concomitant]
  3. REQUIP [Suspect]
     Indication: RESTLESS LEGS SYNDROME
     Dosage: 30MG THREE TIMES PER DAY
     Route: 048
     Dates: start: 20120117, end: 20120119
  4. CELEBREX [Concomitant]
  5. PREVACID [Concomitant]
  6. NEURONTIN [Concomitant]
  7. ACTONEL [Concomitant]

REACTIONS (14)
  - MALAISE [None]
  - SOMNOLENCE [None]
  - DRY MOUTH [None]
  - NAUSEA [None]
  - MEMORY IMPAIRMENT [None]
  - HEART RATE DECREASED [None]
  - OVERDOSE [None]
  - HAEMATOMA [None]
  - CONFUSIONAL STATE [None]
  - VOMITING [None]
  - CHEST PAIN [None]
  - BACK PAIN [None]
  - BLOOD PRESSURE INCREASED [None]
  - BLOOD PRESSURE DECREASED [None]
